FAERS Safety Report 6520942-0 (Version None)
Quarter: 2009Q4

REPORT INFORMATION
  Report Type: 
  Country: None (occurrence: None)
  Receive Date: 20091229
  Receipt Date: 20091208
  Transmission Date: 20100525
  Serious: Yes (Hospitalization)
  Sender: FDA-Public Use
  Company Number: CA-GENENTECH-296193

PATIENT
  Sex: Female

DRUGS (1)
  1. XOLAIR [Suspect]
     Indication: ASTHMA
     Dosage: 150 UNK, Q4W
     Route: 058
     Dates: start: 20090107

REACTIONS (4)
  - DYSPNOEA [None]
  - HEADACHE [None]
  - OXYGEN SATURATION DECREASED [None]
  - SINUS CONGESTION [None]
